FAERS Safety Report 20486674 (Version 1)
Quarter: 2022Q1

REPORT INFORMATION
  Report Type: Spontaneous
  Country: US (occurrence: US)
  Receive Date: 20220217
  Receipt Date: 20220217
  Transmission Date: 20220423
  Serious: Yes (Death, Hospitalization, Other)
  Sender: FDA-Public Use
  Company Number: US-PFIZER INC-202200249846

PATIENT
  Age: 30 Year
  Sex: Female

DRUGS (4)
  1. BENZONATATE [Suspect]
     Active Substance: BENZONATATE
     Dosage: UNK (INGESTION)
     Route: 048
  2. HYDROXYZINE PAMOATE [Suspect]
     Active Substance: HYDROXYZINE PAMOATE
     Dosage: UNK (INGESTION)
     Route: 048
  3. DULOXETINE [Suspect]
     Active Substance: DULOXETINE
     Dosage: UNK (INGESTION)
     Route: 048
  4. ACETAMINOPHEN [Suspect]
     Active Substance: ACETAMINOPHEN
     Dosage: UNK (INGESTION)
     Route: 048

REACTIONS (1)
  - Completed suicide [Fatal]

NARRATIVE: CASE EVENT DATE: 20200101
